FAERS Safety Report 18848031 (Version 1)
Quarter: 2021Q1

REPORT INFORMATION
  Report Type: Spontaneous
  Country: US (occurrence: US)
  Receive Date: 20210204
  Receipt Date: 20210204
  Transmission Date: 20210419
  Serious: No
  Sender: FDA-Public Use
  Company Number: US-HILL DERMACEUTICALS, INC.-2106354

PATIENT
  Age: 2 Month
  Sex: Male

DRUGS (3)
  1. DERMA?SMOOTHE/FS [Suspect]
     Active Substance: FLUOCINOLONE ACETONIDE
     Indication: RASH
     Route: 061
  2. PREDNISONE. [Concomitant]
     Active Substance: PREDNISONE
  3. TRIAMCINOLONE ACETONIDE. [Concomitant]
     Active Substance: TRIAMCINOLONE ACETONIDE

REACTIONS (6)
  - Eczema [Recovered/Resolved]
  - Scab [Recovered/Resolved]
  - Application site discolouration [Recovered/Resolved]
  - Abnormal loss of weight [Recovered/Resolved]
  - Condition aggravated [Recovered/Resolved]
  - Alopecia [Recovered/Resolved]
